FAERS Safety Report 9748870 (Version 2)
Quarter: 2013Q4

REPORT INFORMATION
  Report Type: Spontaneous
  Country: GB (occurrence: None)
  Receive Date: 20131209
  Receipt Date: 20131212
  Transmission Date: 20140711
  Serious: Yes (Other)
  Sender: FDA-Public Use
  Company Number: SYM-2013-13731

PATIENT
  Age: 71 Year
  Sex: Female

DRUGS (8)
  1. TIMOLOL MALEATE [Suspect]
     Indication: GLAUCOMA
     Route: 047
  2. COSOPT (20 MG/ML + 5 MG/ML) (2.0/0.5 %) (COSOPT) (EYE DROPS, SOLUTION) (TIMOLOL MALEATE, DORZOLAMIDE HYDROCHLORIDE) [Suspect]
     Indication: GLAUCOMA
     Route: 047
  3. TRUSOPT (DORZOLAMIDE HYDROCHLORIDE) (20 MILLIGRAM/MILLILITERS, EYE DROPS, SOLUTION) (DORZOLAMIDE HYDROCHLORIDE) [Suspect]
     Indication: GLAUCOMA
     Route: 047
  4. XALATAN (LATANOPROST) (LATANOPROST) [Suspect]
     Indication: GLAUCOMA
     Route: 031
  5. AZOPT (BRINZOLAMIDE) (1 PERCENT) (BRINZOLAMIDE) [Suspect]
     Indication: GLAUCOMA
     Route: 047
  6. ALPHAGAN (BRIMONIDINE TARTRATE) (BRIMONIDINE TARTRATE) [Suspect]
     Indication: GLAUCOMA
     Route: 047
  7. AZARGA (AZARGA) (TIMOLOL MALEATE, BRINZOLAMIDE) [Suspect]
     Indication: GLAUCOMA
     Route: 047
  8. AMITRIPTYLINE HYDROCHLORIDE (AMITRIPTYLINE HYDROCHLORIDE) (TABLET) (AMITRIPTYLINE HYDROCHLORIDE) [Suspect]
     Indication: PRODUCT USED FOR UNKNOWN INDICATION

REACTIONS (6)
  - Glaucoma [None]
  - Disease progression [None]
  - Choroidal detachment [None]
  - Conjunctival bleb [None]
  - Drug hypersensitivity [None]
  - Drug ineffective [None]
